FAERS Safety Report 22321086 (Version 1)
Quarter: 2023Q2

REPORT INFORMATION
  Report Type: Spontaneous
  Country: ES (occurrence: ES)
  Receive Date: 20230515
  Receipt Date: 20230515
  Transmission Date: 20230722
  Serious: Yes (Hospitalization)
  Sender: FDA-Public Use
  Company Number: None

PATIENT
  Age: 5 Year
  Sex: Male

DRUGS (3)
  1. CARBOPLATIN [Suspect]
     Active Substance: CARBOPLATIN
     Indication: Yolk sac tumour site unspecified
     Dosage: 244 MG IV IN 1 HOUR, CYCLES
     Route: 042
     Dates: start: 20210714
  2. PACLITAXEL [Suspect]
     Active Substance: PACLITAXEL
     Indication: Yolk sac tumour site unspecified
     Dosage: 97.2 MG IV IN 3 HOURS, CYCLES
     Route: 042
     Dates: start: 20210714
  3. IFOSFAMIDE [Suspect]
     Active Substance: IFOSFAMIDE
     Indication: Yolk sac tumour site unspecified
     Dosage: 1296 MG IV IN 4 HOURS,CYCLES
     Route: 042
     Dates: start: 20210714

REACTIONS (3)
  - Hypertransaminasaemia [Recovering/Resolving]
  - Thrombocytopenia [Recovering/Resolving]
  - Anal haemorrhage [Recovered/Resolved]

NARRATIVE: CASE EVENT DATE: 20221021
